FAERS Safety Report 18870186 (Version 2)
Quarter: 2021Q1

REPORT INFORMATION
  Report Type: Spontaneous
  Country: FR (occurrence: FR)
  Receive Date: 20210209
  Receipt Date: 20210216
  Transmission Date: 20210420
  Serious: Yes (Hospitalization, Other)
  Sender: FDA-Public Use
  Company Number: FR-B.I. PHARMACEUTICALS,INC./RIDGEFIELD-2021-BI-081556

PATIENT
  Age: 80 Year
  Sex: Male
  Weight: 100 kg

DRUGS (9)
  1. METFORMIN [Suspect]
     Active Substance: METFORMIN HYDROCHLORIDE
     Indication: PRODUCT USED FOR UNKNOWN INDICATION
     Dosage: UNK
     Route: 065
  2. PREDNISONE. [Suspect]
     Active Substance: PREDNISONE
     Indication: GOUT
     Dosage: 20 MILLIGRAM, QD
     Route: 065
  3. TRAMADOL. [Suspect]
     Active Substance: TRAMADOL
     Indication: GOUT
     Dosage: 100 MILLIGRAM, BID
     Route: 065
  4. HYDROXYZINE [Suspect]
     Active Substance: HYDROXYZINE HYDROCHLORIDE
     Indication: AGITATION
     Dosage: 50 MILLIGRAM, BID
     Route: 065
  5. ALFUZOSINE [ALFUZOSIN] [Suspect]
     Active Substance: ALFUZOSIN HYDROCHLORIDE
     Indication: PRODUCT USED FOR UNKNOWN INDICATION
     Dosage: 10 MILLIGRAM, QD EVENING
     Route: 065
  6. ATROVENT [Suspect]
     Active Substance: IPRATROPIUM BROMIDE
     Indication: ACUTE RESPIRATORY FAILURE
     Dosage: 2 DOSAGE FORM, QID
     Route: 065
  7. ACETAMINOPHEN. [Suspect]
     Active Substance: ACETAMINOPHEN
     Indication: GOUT
     Dosage: 1 GRAM IF NEEDED (4 G MAX)
     Route: 065
  8. COLCHICINE;PAPAVER SOMNIFERUM;TIEMONIUM [Suspect]
     Active Substance: COLCHICINE\OPIUM\TIEMONIUM
     Indication: GOUT
     Dosage: 2 MILLIGRAM, QD
     Route: 065
  9. FUROSEMIDE. [Suspect]
     Active Substance: FUROSEMIDE
     Indication: PRODUCT USED FOR UNKNOWN INDICATION
     Dosage: 40 MILLIGRAM
     Route: 005

REACTIONS (5)
  - Fall [Unknown]
  - Gout [Unknown]
  - Acute respiratory failure [Unknown]
  - Cardiac failure [Unknown]
  - Agitation [Unknown]
